FAERS Safety Report 4320709-8 (Version None)
Quarter: 2004Q1

REPORT INFORMATION
  Report Type: 
  Country: None (occurrence: None)
  Receive Date: 20040318
  Receipt Date: 20040301
  Transmission Date: 20041129
  Serious: Yes (Hospitalization)
  Sender: FDA-Public Use
  Company Number: 185942

PATIENT
  Age: 42 Year
  Sex: Male

DRUGS (7)
  1. AVONEX [Suspect]
     Indication: MULTIPLE SCLEROSIS
     Dosage: 30 MCG QW IM
     Route: 030
     Dates: start: 19980101, end: 20031022
  2. AVONEX [Suspect]
     Indication: MULTIPLE SCLEROSIS
     Dosage: 30 MCG QW IM
     Route: 030
     Dates: start: 20031029
  3. ATARAX [Concomitant]
  4. PRAXINOR [Concomitant]
  5. DITROPAN [Concomitant]
  6. NOZINAN [Concomitant]
  7. IMOVANE [Concomitant]

REACTIONS (6)
  - ABDOMINAL PAIN UPPER [None]
  - DIARRHOEA [None]
  - FUNGAL INFECTION [None]
  - INFLUENZA LIKE ILLNESS [None]
  - PRURITUS [None]
  - VOMITING [None]
